FAERS Safety Report 5731756-3 (Version None)
Quarter: 2008Q2

REPORT INFORMATION
  Report Type: 
  Country: None (occurrence: None)
  Receive Date: 20080508
  Receipt Date: 20080507
  Transmission Date: 20081010
  Serious: Yes (Hospitalization)
  Sender: FDA-Public Use
  Company Number: A0713139A

PATIENT
  Age: 60 Year
  Sex: Female

DRUGS (4)
  1. ALLI [Suspect]
     Indication: WEIGHT LOSS DIET
     Route: 048
     Dates: start: 20080204, end: 20080225
  2. EVISTA [Concomitant]
  3. ASPIRIN [Concomitant]
  4. PRILOSEC [Concomitant]

REACTIONS (8)
  - ABDOMINAL PAIN UPPER [None]
  - DEHYDRATION [None]
  - HYPOTENSION [None]
  - LOSS OF CONSCIOUSNESS [None]
  - PAIN [None]
  - SPINAL COMPRESSION FRACTURE [None]
  - STOMACH DISCOMFORT [None]
  - THORACIC VERTEBRAL FRACTURE [None]
